FAERS Safety Report 20119012 (Version 1)
Quarter: 2021Q4

REPORT INFORMATION
  Report Type: Spontaneous
  Country: US (occurrence: None)
  Receive Date: 20211126
  Receipt Date: 20211126
  Transmission Date: 20220303
  Serious: Yes (Other)
  Sender: FDA-Public Use
  Company Number: 2021A824713

PATIENT

DRUGS (2)
  1. CALQUENCE [Suspect]
     Active Substance: ACALABRUTINIB
     Indication: Chronic lymphocytic leukaemia
     Route: 048
  2. IMBRUVICA [Suspect]
     Active Substance: IBRUTINIB
     Route: 065

REACTIONS (6)
  - Mitral valve disease [Unknown]
  - Atrial fibrillation [Unknown]
  - Haemorrhage subcutaneous [Unknown]
  - Rash [Unknown]
  - Diarrhoea [Unknown]
  - Therapeutic product effect delayed [Unknown]
